FAERS Safety Report 4993071-5 (Version None)
Quarter: 2006Q1

REPORT INFORMATION
  Report Type: 
  Country: None (occurrence: None)
  Receive Date: 20060313
  Receipt Date: 20060118
  Transmission Date: 20060701
  Serious: No
  Sender: FDA-Public Use
  Company Number: 2006-BP-00624BP

PATIENT
  Age: 78 Year
  Sex: Male

DRUGS (5)
  1. SPIRIVA [Suspect]
     Indication: CHRONIC OBSTRUCTIVE PULMONARY DISEASE
     Dosage: 18 MCG (18 MCG),IH
     Dates: start: 20051101, end: 20051130
  2. SPIRIVA [Suspect]
     Indication: EMPHYSEMA
     Dosage: 18 MCG (18 MCG),IH
     Dates: start: 20051101, end: 20051130
  3. METFORMIN [Concomitant]
  4. GLYBURIDE [Concomitant]
  5. MAXZIDE [Concomitant]

REACTIONS (2)
  - PROSTATE EXAMINATION ABNORMAL [None]
  - VISION BLURRED [None]
